FAERS Safety Report 6541248-X (Version None)
Quarter: 2010Q1

REPORT INFORMATION
  Report Type: 
  Country: None (occurrence: None)
  Receive Date: 20100118
  Receipt Date: 20100111
  Transmission Date: 20100710
  Serious: Yes (Other)
  Sender: FDA-Public Use
  Company Number: TR-ELI_LILLY_AND_COMPANY-TR201001001574

PATIENT
  Age: 33 Year
  Sex: Female

DRUGS (4)
  1. HUMULIN N [Suspect]
     Indication: DIABETES MELLITUS
     Dosage: 10 IU, DAILY (1/D)
     Route: 058
     Dates: start: 20090901, end: 20091001
  2. NOVORAPID [Concomitant]
     Indication: DIABETES MELLITUS
     Dosage: 6 IU, EACH MORNING
     Route: 058
     Dates: start: 20090901, end: 20091001
  3. NOVORAPID [Concomitant]
     Dosage: 6 IU, DAILY (1/D)
     Route: 058
     Dates: start: 20090901, end: 20091001
  4. NOVORAPID [Concomitant]
     Dosage: 6 IU, EACH EVENING
     Route: 058
     Dates: start: 20090901, end: 20091001

REACTIONS (2)
  - DRUG EXPOSURE DURING PREGNANCY [None]
  - STILLBIRTH [None]
